FAERS Safety Report 6326606-0 (Version None)
Quarter: 2009Q3

REPORT INFORMATION
  Report Type: 
  Country: None (occurrence: None)
  Receive Date: 20090825
  Receipt Date: 20090810
  Transmission Date: 20100115
  Serious: Yes (Death)
  Sender: FDA-Public Use
  Company Number: US-BRISTOL-MYERS SQUIBB COMPANY-14745699

PATIENT
  Age: 54 Year
  Sex: Male

DRUGS (6)
  1. EFAVIRENZ [Suspect]
     Indication: ANTIRETROVIRAL THERAPY
     Route: 048
  2. TENOFOVIR [Suspect]
     Indication: ANTIRETROVIRAL THERAPY
     Route: 065
  3. EMTRICITABINE [Suspect]
     Indication: ANTIRETROVIRAL THERAPY
     Route: 065
  4. ISONIAZID [Concomitant]
     Indication: TUBERCULOSIS
  5. ETHAMBUTOL [Concomitant]
     Indication: TUBERCULOSIS
  6. LEVOFLOXACIN [Concomitant]
     Indication: TUBERCULOSIS

REACTIONS (1)
  - IMMUNE RECONSTITUTION SYNDROME [None]
